FAERS Safety Report 12005761 (Version 1)
Quarter: 2016Q1

REPORT INFORMATION
  Report Type: Spontaneous
  Country: KR (occurrence: KR)
  Receive Date: 20160205
  Receipt Date: 20160205
  Transmission Date: 20160526
  Serious: Yes (Hospitalization)
  Sender: FDA-Public Use
  Company Number: KR-AMGEN-KORCT2016013569

PATIENT
  Age: 70 Year
  Sex: Male
  Weight: 60 kg

DRUGS (36)
  1. G-LASTA [Suspect]
     Active Substance: PEGFILGRASTIM
     Indication: FEBRILE NEUTROPENIA
     Dosage: 6 MG, 1X/3WEEKS
     Route: 058
     Dates: start: 20151026
  2. SEPTRIN [Concomitant]
     Active Substance: SULFAMETHOXAZOLE\TRIMETHOPRIM
     Dosage: 1920 MG, UNK
     Route: 048
     Dates: start: 20151031
  3. URSA [Concomitant]
     Dosage: 300 MG, UNK
     Route: 048
     Dates: start: 20151110
  4. DENOGAN [Concomitant]
     Dosage: 1 G, UNK
     Route: 042
     Dates: start: 20151027, end: 20151105
  5. FUROSEMIDE. [Concomitant]
     Active Substance: FUROSEMIDE
     Dosage: 40 MG, UNK
     Dates: start: 20151108, end: 20151109
  6. GODEX [Concomitant]
     Dosage: 3 DF, UNK
     Route: 048
     Dates: start: 20151110
  7. POTASSIUM CHLORIDE. [Concomitant]
     Active Substance: POTASSIUM CHLORIDE
     Dosage: 3600 MG, UNK
     Route: 048
     Dates: start: 20151104, end: 20151107
  8. TOPISOLON                          /00370301/ [Concomitant]
     Dosage: UNK UNK, AS NECESSARY
     Route: 062
     Dates: start: 20151104
  9. VINCRISTINE [Concomitant]
     Active Substance: VINCRISTINE
     Dosage: 1.76 MG, UNK
     Route: 042
     Dates: start: 20151022, end: 20151022
  10. CEFEPIME [Concomitant]
     Active Substance: CEFEPIME HYDROCHLORIDE
     Dosage: 6 G, UNK
     Route: 042
     Dates: start: 20151011, end: 20151030
  11. MEGESTROL ACETATE. [Concomitant]
     Active Substance: MEGESTROL ACETATE
     Dosage: 625 MG, UNK
     Route: 048
     Dates: start: 20151018, end: 20151031
  12. OLANZAPINE. [Concomitant]
     Active Substance: OLANZAPINE
     Dosage: 2.5 MG, UNK
     Route: 048
     Dates: start: 20151014, end: 20151027
  13. BISACODYL. [Concomitant]
     Active Substance: BISACODYL
     Dosage: 20 MG, UNK
     Route: 054
     Dates: start: 20151110, end: 20151110
  14. PREPENEM [Concomitant]
     Dosage: 2000 MG, UNK
     Route: 042
     Dates: start: 20151030
  15. METRONIDAZOLE. [Concomitant]
     Active Substance: METRONIDAZOLE
     Dosage: 1500 MG, UNK
     Route: 048
     Dates: start: 20151109
  16. KEROMIN [Concomitant]
     Dosage: 30 MG, UNK
     Route: 042
     Dates: start: 20151101, end: 20151101
  17. FUROSEMIDE. [Concomitant]
     Active Substance: FUROSEMIDE
     Dosage: 10 MG, UNK
     Route: 042
     Dates: start: 20151030, end: 20151030
  18. NAPROXEN SODIUM. [Concomitant]
     Active Substance: NAPROXEN SODIUM
     Dosage: 1100 MG, UNK
     Route: 048
     Dates: start: 20151102
  19. VANCOMYCIN [Concomitant]
     Active Substance: VANCOMYCIN
     Dosage: 2 G, UNK
     Route: 042
     Dates: start: 20151017, end: 20151030
  20. NYSTATIN. [Concomitant]
     Active Substance: NYSTATIN
     Dosage: 5 ML, UNK
     Route: 048
     Dates: start: 20151012
  21. CAFSOL [Concomitant]
     Dosage: 500 ML, UNK
     Route: 042
     Dates: start: 20151108, end: 20151108
  22. FUROSEMIDE. [Concomitant]
     Active Substance: FUROSEMIDE
     Dosage: 10 MG, UNK
     Route: 042
     Dates: start: 20151102, end: 20151102
  23. FUROSEMIDE. [Concomitant]
     Active Substance: FUROSEMIDE
     Dosage: 10 MG, UNK
     Route: 042
     Dates: start: 20151109, end: 20151109
  24. FUROSEMIDE. [Concomitant]
     Active Substance: FUROSEMIDE
     Dosage: 20 MG, UNK
     Route: 042
     Dates: start: 20151110
  25. CYCLOPHOSPHAMIDE. [Concomitant]
     Active Substance: CYCLOPHOSPHAMIDE
     Dosage: 945 MG, UNK
     Route: 042
     Dates: start: 20151022, end: 20151022
  26. DOXORUBICIN [Concomitant]
     Active Substance: DOXORUBICIN
     Dosage: 60 MG, UNK
     Route: 042
     Dates: start: 20151023, end: 20151023
  27. DEXAMETHASONE. [Concomitant]
     Active Substance: DEXAMETHASONE
     Dosage: 40 MG, UNK
     Route: 042
     Dates: start: 20151020, end: 20151023
  28. TEICOPLANIN [Concomitant]
     Active Substance: TEICOPLANIN
     Dosage: 400 MG, UNK
     Route: 042
     Dates: start: 20151030
  29. LENOGRASTIM [Concomitant]
     Active Substance: LENOGRASTIM
     Dosage: 259 MUG, UNK
     Route: 058
     Dates: start: 20151030, end: 20151030
  30. TYLENOL [Concomitant]
     Active Substance: ACETAMINOPHEN
     Dosage: 650 MG, UNK
     Route: 048
     Dates: start: 20151103, end: 20151103
  31. SEPTRIN [Concomitant]
     Active Substance: SULFAMETHOXAZOLE\TRIMETHOPRIM
     Dosage: 1920 MG, UNK
     Route: 048
     Dates: start: 20151018, end: 20151030
  32. FLUCONAZOLE. [Concomitant]
     Active Substance: FLUCONAZOLE
     Dosage: 400 MG, UNK
     Route: 048
     Dates: start: 20151109
  33. ENOXAPARIN [Concomitant]
     Active Substance: ENOXAPARIN
     Dosage: 40 MG, UNK
     Route: 058
     Dates: start: 20151025
  34. PANTOPRAZOLE [Concomitant]
     Active Substance: PANTOPRAZOLE SODIUM
     Dosage: 20 MG, UNK
     Route: 048
     Dates: start: 20151030, end: 20151114
  35. QUETIAPINE [Concomitant]
     Active Substance: QUETIAPINE
     Dosage: 12.5 MG, UNK
     Route: 048
     Dates: start: 20151108, end: 20151110
  36. VESICARE [Concomitant]
     Active Substance: SOLIFENACIN SUCCINATE
     Dosage: 5 MG, UNK
     Route: 048
     Dates: start: 20151110

REACTIONS (1)
  - Disease progression [Not Recovered/Not Resolved]

NARRATIVE: CASE EVENT DATE: 20151113
